FAERS Safety Report 25469009 (Version 1)
Quarter: 2025Q2

REPORT INFORMATION
  Report Type: Spontaneous
  Country: US (occurrence: None)
  Receive Date: 20250623
  Receipt Date: 20250623
  Transmission Date: 20250717
  Serious: Yes (Other)
  Sender: FDA-CTU
  Company Number: None

PATIENT
  Age: 81 Year
  Sex: Female
  Weight: 64 kg

DRUGS (1)
  1. DEFINITY [Suspect]
     Active Substance: PERFLUTREN

REACTIONS (6)
  - Contrast media reaction [None]
  - Feeling hot [None]
  - Feeling abnormal [None]
  - Oxygen saturation decreased [None]
  - Speech disorder [None]
  - Contrast media allergy [None]

NARRATIVE: CASE EVENT DATE: 20250601
